FAERS Safety Report 25723738 (Version 1)
Quarter: 2025Q3

REPORT INFORMATION
  Report Type: Report from Study
  Country: CL (occurrence: CL)
  Receive Date: 20250825
  Receipt Date: 20250825
  Transmission Date: 20251021
  Serious: Yes (Life-Threatening, Hospitalization, Disabling, Other)
  Sender: NOVARTIS
  Company Number: CL-002147023-NVSC2024CL083867

PATIENT
  Age: 11 Month
  Sex: Male

DRUGS (5)
  1. ZOLGENSMA [Suspect]
     Active Substance: ONASEMNOGENE ABEPARVOVEC-XIOI
     Indication: Spinal muscular atrophy
     Route: 042
     Dates: start: 20240228, end: 20240228
  2. PREDNISONE [Concomitant]
     Active Substance: PREDNISONE
     Indication: Product used for unknown indication
     Route: 065
  3. OMEPRAZOLE [Concomitant]
     Active Substance: OMEPRAZOLE
     Indication: Product used for unknown indication
     Route: 065
  4. DOMPERIDONE [Concomitant]
     Active Substance: DOMPERIDONE
     Indication: Product used for unknown indication
     Route: 065
  5. VITAMIN D [Concomitant]
     Active Substance: VITAMIN D NOS
     Indication: Product used for unknown indication
     Route: 065

REACTIONS (4)
  - Drug effect less than expected [Not Recovered/Not Resolved]
  - Dysphagia [Unknown]
  - Motor developmental delay [Not Recovered/Not Resolved]
  - Joint dislocation [Unknown]
